FAERS Safety Report 21968575 (Version 1)
Quarter: 2023Q1

REPORT INFORMATION
  Report Type: Spontaneous
  Country: US (occurrence: None)
  Receive Date: 20230207
  Receipt Date: 20230207
  Transmission Date: 20230417
  Serious: No
  Sender: FDA-Public Use
  Company Number: None

PATIENT
  Age: 66 Year
  Sex: Female
  Weight: 54.9 kg

DRUGS (5)
  1. CARBOXYMETHYLCELLULOSE SODIUM [Suspect]
     Active Substance: CARBOXYMETHYLCELLULOSE SODIUM
     Indication: Dry eye
     Dosage: FREQUENCY : AS NEEDED;?
     Route: 047
     Dates: start: 20221221, end: 20230203
  2. PRAVASTATIN [Concomitant]
     Active Substance: PRAVASTATIN
  3. LEVOTHYROXINE [Concomitant]
     Active Substance: LEVOTHYROXINE
  4. ONE-A-DAY NOS [Concomitant]
     Active Substance: MINERALS\VITAMINS
  5. CALCIUM [Concomitant]
     Active Substance: CALCIUM

REACTIONS (4)
  - Eye pain [None]
  - Eye pain [None]
  - Ocular hyperaemia [None]
  - Ocular discomfort [None]

NARRATIVE: CASE EVENT DATE: 20230122
